FAERS Safety Report 7321413-4 (Version None)
Quarter: 2011Q1

REPORT INFORMATION
  Report Type: 
  Country: None (occurrence: None)
  Receive Date: 20110228
  Receipt Date: 20100617
  Transmission Date: 20110831
  Serious: Yes (Other)
  Sender: FDA-Public Use
  Company Number: US-PFIZER INC-2009242129

PATIENT
  Sex: Female
  Weight: 81.633 kg

DRUGS (3)
  1. GEODON [Suspect]
     Indication: HALLUCINATION, AUDITORY
     Dosage: 60 MG, 1X/DAY
     Route: 048
     Dates: start: 20080101
  2. GEODON [Suspect]
     Indication: OBSESSIVE-COMPULSIVE DISORDER
     Dosage: 60 MG, 2X/DAY
     Route: 048
     Dates: end: 20090101
  3. TRAMADOL [Concomitant]
     Dosage: UNK

REACTIONS (1)
  - DYSKINESIA [None]
